FAERS Safety Report 9124105 (Version 2)
Quarter: 2013Q2

REPORT INFORMATION
  Report Type: Spontaneous
  Country: US (occurrence: US)
  Receive Date: 20130116
  Receipt Date: 20130426
  Transmission Date: 20140414
  Serious: Yes (Death)
  Sender: FDA-Public Use
  Company Number: US-INCYTE CORPORATION-2013IN000065

PATIENT
  Age: 83 Year
  Sex: Male
  Weight: 76.64 kg

DRUGS (4)
  1. JAKAFI [Suspect]
     Indication: MYELOPROLIFERATIVE DISORDER
     Dosage: 25 MG, BID
     Route: 048
     Dates: start: 20120124
  2. ASA [Concomitant]
     Dosage: 81 MG, QD
  3. HYDROXYUREA [Concomitant]
     Dosage: 500 MG 1 ON ODD DAYS AND 2 ON EVEN DAYS
  4. DIURETICS [Concomitant]

REACTIONS (1)
  - Disease progression [Fatal]
